FAERS Safety Report 14067214 (Version 1)
Quarter: 2017Q4

REPORT INFORMATION
  Report Type: Report from Study
  Country: BR (occurrence: BR)
  Receive Date: 20171010
  Receipt Date: 20171010
  Transmission Date: 20180321
  Serious: Yes (Death, Hospitalization, Other)
  Sender: FDA-Public Use
  Company Number: BR-ROCHE-2002656

PATIENT
  Age: 58 Year
  Sex: Female

DRUGS (3)
  1. SIMPONI [Concomitant]
     Active Substance: GOLIMUMAB
  2. MABTHERA [Suspect]
     Active Substance: RITUXIMAB
     Indication: RHEUMATOID ARTHRITIS
     Dosage: MOST RECENT DOSE ON: 10/MAR/2017
     Route: 042
     Dates: start: 20170228
  3. HUMIRA [Concomitant]
     Active Substance: ADALIMUMAB

REACTIONS (7)
  - Cardio-respiratory arrest [Unknown]
  - Death [Fatal]
  - Pneumonia [Unknown]
  - Cystic fibrosis [Unknown]
  - Gait inability [Unknown]
  - Infection [Unknown]
  - Emphysema [Unknown]

NARRATIVE: CASE EVENT DATE: 20170520
